FAERS Safety Report 7871959 (Version 2)
Quarter: 2012Q4

REPORT INFORMATION
  Report Type: 
  Country: JP (occurrence: JP)
  Receive Date: 20110325
  Receipt Date: 20121107
  Transmission Date: 20130627
  Serious: Yes (Death, Hospitalization, Other)
  Sender: FDA-Public Use
  Company Number: JP-ROCHE-767103

PATIENT
  Age: 62 Year
  Sex: Male
  Weight: 58 kg

DRUGS (11)
  1. XELODA [Suspect]
     Indication: RECTAL CANCER RECURRENT
     Dosage: IT IS ONE ADMINISTERING WEEKLY HOLIDAY MEDICINE FOR TWO WEEKS.
     Route: 048
     Dates: start: 20100108, end: 201006
  2. XELODA [Suspect]
     Dosage: IT IS ONE ADMINISTERING WEEKLY HOLIDAY MEDICINE FOR TWO WEEKS.
     Route: 048
     Dates: start: 20100702, end: 20101007
  3. AVASTIN [Suspect]
     Indication: RECTAL CANCER RECURRENT
     Route: 041
     Dates: start: 20100108, end: 201006
  4. AVASTIN [Suspect]
     Route: 041
     Dates: start: 20100702, end: 20101007
  5. ELPLAT [Concomitant]
     Route: 041
     Dates: start: 20100702, end: 20101007
  6. MAGMITT [Concomitant]
     Route: 048
  7. PANTOSIN [Concomitant]
     Route: 048
  8. OXYCONTIN [Concomitant]
     Route: 048
  9. TAKEPRON [Concomitant]
     Route: 048
  10. GABAPEN [Concomitant]
     Route: 048
  11. DECADRON [Concomitant]
     Dosage: FORM: PERORAL AGENT
     Route: 048

REACTIONS (6)
  - Disease progression [Fatal]
  - Hyperammonaemia [Recovered/Resolved]
  - Depressed level of consciousness [Unknown]
  - Pneumonia bacterial [Unknown]
  - Constipation [Unknown]
  - Palmar-plantar erythrodysaesthesia syndrome [Unknown]
